FAERS Safety Report 18537652 (Version 1)
Quarter: 2020Q4

REPORT INFORMATION
  Report Type: Report from Study
  Country: None (occurrence: ES)
  Receive Date: 20201123
  Receipt Date: 20201123
  Transmission Date: 20210114
  Serious: Yes (Hospitalization)
  Sender: FDA-Public Use
  Company Number: ES-ABBVIE-20P-144-3652247-00

PATIENT
  Age: 53 Year
  Sex: Male

DRUGS (12)
  1. METAMIZOL [Concomitant]
     Active Substance: METAMIZOLE SODIUM
     Indication: PAIN PROPHYLAXIS
     Route: 048
     Dates: start: 2020
  2. IRINOTECAN [Suspect]
     Active Substance: IRINOTECAN
     Indication: NEOPLASM
     Dosage: EVERY 2 WEEKS OF 21 DAY CYCLE
     Route: 042
     Dates: start: 20201020, end: 20201103
  3. LEUCOVORIN. [Suspect]
     Active Substance: LEUCOVORIN
     Indication: NEOPLASM
     Dosage: EVERY 2 WEEKS OF 21 DAY CYCLE
     Route: 040
     Dates: start: 20201020, end: 20201103
  4. BETAMETHASONE DIPROPIONATE. [Concomitant]
     Active Substance: BETAMETHASONE DIPROPIONATE
     Indication: SKIN DISORDER PROPHYLAXIS
     Route: 061
     Dates: start: 2020
  5. LACTITOL MA [Concomitant]
     Indication: CONSTIPATION PROPHYLAXIS
     Route: 048
     Dates: start: 20201027
  6. LOPERAMIDE [Concomitant]
     Active Substance: LOPERAMIDE
     Indication: DIARRHOEA
     Route: 048
     Dates: start: 20201027
  7. 5-FLUOROURACIL [Suspect]
     Active Substance: FLUOROURACIL
     Indication: NEOPLASM
     Dosage: EVERY 2 WEEKS OF 21 DAY CYCLE?400MG/M2 FOLLOWED BY 2400MG/M2
     Route: 040
     Dates: start: 20201020, end: 20201103
  8. 5-FLUOROURACIL [Suspect]
     Active Substance: FLUOROURACIL
     Route: 040
     Dates: start: 20201020, end: 20201105
  9. DEXAMETHASONE. [Concomitant]
     Active Substance: DEXAMETHASONE
     Indication: PROPHYLAXIS OF NAUSEA AND VOMITING
     Route: 048
     Dates: start: 20201020
  10. EBASTIN [Concomitant]
     Active Substance: EBASTINE
     Indication: ALLERGY PROPHYLAXIS
     Route: 048
     Dates: start: 2020
  11. ABBV-621 [Suspect]
     Active Substance: EFTOZANERMIN ALFA
     Indication: NEOPLASM
     Dosage: D1 OF 21 DAY CYCLE (STARTING DOSE)?D1, D8 AND D15 OF 21 DAY CYCLE (BASED ON ESCALATION)
     Route: 042
     Dates: start: 20201020, end: 20201103
  12. LORAZEPAM. [Concomitant]
     Active Substance: LORAZEPAM
     Indication: INSOMNIA
     Route: 048
     Dates: start: 202003

REACTIONS (1)
  - Diarrhoea [Recovered/Resolved]

NARRATIVE: CASE EVENT DATE: 20201115
